FAERS Safety Report 7611811-3 (Version None)
Quarter: 2011Q3

REPORT INFORMATION
  Report Type: 
  Country: None (occurrence: None)
  Receive Date: 20110715
  Receipt Date: 20110708
  Transmission Date: 20111222
  Serious: Yes (Other)
  Sender: FDA-Public Use
  Company Number: JP-B.I. PHARMACEUTICALS,INC./RIDGEFIELD-2011-BP-11885NB

PATIENT
  Sex: Male
  Weight: 60 kg

DRUGS (3)
  1. CALCIUM CHANNEL BLOCKERS [Concomitant]
     Indication: HYPERTENSION
  2. TAMBOCOR [Concomitant]
     Indication: ATRIAL FIBRILLATION
     Dosage: 100 MG
     Route: 048
     Dates: start: 20091121, end: 20110629
  3. PRADAXA [Suspect]
     Indication: ATRIAL FIBRILLATION
     Dosage: 220 MG
     Route: 048
     Dates: start: 20110331, end: 20110404

REACTIONS (1)
  - DEFAECATION URGENCY [None]
